FAERS Safety Report 6692996-2 (Version None)
Quarter: 2010Q2

REPORT INFORMATION
  Report Type: 
  Country: None (occurrence: None)
  Receive Date: 20100422
  Receipt Date: 20100413
  Transmission Date: 20101027
  Serious: Yes (Hospitalization, Other)
  Sender: FDA-Public Use
  Company Number: US-NAPPMUNDI-USA-2010-0042943

PATIENT
  Sex: Female

DRUGS (3)
  1. OXYCONTIN [Suspect]
     Indication: PAIN
     Dosage: 160 MG, Q6H
     Dates: start: 20080101, end: 20091101
  2. TAMOXIFEN CITRATE [Concomitant]
     Indication: BREAST CANCER METASTATIC
     Dosage: 20 MG, DAILY
  3. LEVOTHYROXINE [Concomitant]
     Dosage: 125 MG, DAILY

REACTIONS (11)
  - BACTERAEMIA [None]
  - BACTERIAL SEPSIS [None]
  - BLOOD PRESSURE INCREASED [None]
  - BREAST CANCER RECURRENT [None]
  - CHRONIC OBSTRUCTIVE PULMONARY DISEASE [None]
  - DEPRESSION [None]
  - FUNGAEMIA [None]
  - INTENTIONAL DRUG MISUSE [None]
  - LOBAR PNEUMONIA [None]
  - OSTEOMYELITIS [None]
  - SKIN ULCER [None]
